FAERS Safety Report 10645077 (Version 1)
Quarter: 2014Q4

REPORT INFORMATION
  Report Type: Spontaneous
  Country: US (occurrence: None)
  Receive Date: 20141210
  Receipt Date: 20141210
  Transmission Date: 20150529
  Serious: No
  Sender: FDA-Public Use
  Company Number: None

PATIENT
  Age: 96 Year
  Sex: Female
  Weight: 46.27 kg

DRUGS (1)
  1. HYDROCODONE-ACETAMILNOPHEN [Suspect]
     Active Substance: ACETAMINOPHEN\HYDROCODONE BITARTRATE
     Indication: PAIN
     Dosage: 1 OR 2, AS NEEDED 4-6 HOUR, TAKEN BY MOUTH
     Route: 048
     Dates: start: 20141205, end: 20141208

REACTIONS (2)
  - Paranoia [None]
  - Hallucination [None]

NARRATIVE: CASE EVENT DATE: 20141208
